FAERS Safety Report 15766949 (Version 1)
Quarter: 2018Q4

REPORT INFORMATION
  Report Type: Spontaneous
  Country: IT (occurrence: IT)
  Receive Date: 20181227
  Receipt Date: 20181227
  Transmission Date: 20190205
  Serious: Yes (Hospitalization)
  Sender: FDA-Public Use
  Company Number: IT-ASTRAZENECA-2018SF69368

PATIENT
  Age: 77 Year
  Sex: Female

DRUGS (2)
  1. OLAPARIB. [Suspect]
     Active Substance: OLAPARIB
     Dosage: 27-JUN-2018 RESUMES OLAPARIB AT A DOSE OF 50%.
     Route: 048
  2. OLAPARIB. [Suspect]
     Active Substance: OLAPARIB
     Dosage: OCT-2017 STARTS MAINTENANCE THERAPY WITH OLAPARIB 6 CPX2 / DIE
     Route: 048

REACTIONS (4)
  - Asthenia [Unknown]
  - Cardiac failure congestive [Unknown]
  - Anaemia [Unknown]
  - Carbohydrate antigen 125 increased [Unknown]
